FAERS Safety Report 23744428 (Version 1)
Quarter: 2024Q2

REPORT INFORMATION
  Report Type: Spontaneous
  Country: SE (occurrence: SE)
  Receive Date: 20240415
  Receipt Date: 20240415
  Transmission Date: 20240716
  Serious: Yes (Hospitalization)
  Sender: FDA-Public Use
  Company Number: SE-TEVA-2005B-05195

PATIENT
  Age: 63 Year
  Sex: Female

DRUGS (5)
  1. NEOTIGASON [Suspect]
     Active Substance: ACITRETIN
     Indication: Psoriasis
     Dosage: 25MG PER DAY
     Route: 048
     Dates: start: 20050514
  2. NEOTIGASON [Suspect]
     Active Substance: ACITRETIN
     Indication: Psoriasis
     Route: 048
     Dates: start: 20050404, end: 20050414
  3. CYCLOSPORINE [Suspect]
     Active Substance: CYCLOSPORINE
     Indication: Psoriasis
     Route: 065
     Dates: start: 200411, end: 20050418
  4. UNSPECIFIED INGREDIENT [Concomitant]
     Active Substance: UNSPECIFIED INGREDIENT
     Indication: Diabetes mellitus
     Route: 048
     Dates: end: 200504
  5. INSULIN NOS [Concomitant]
     Active Substance: INSULIN NOS
     Indication: Diabetes mellitus
     Route: 065
     Dates: end: 200504

REACTIONS (2)
  - Cerebral haemorrhage [Recovering/Resolving]
  - Thrombocytopenia [Not Recovered/Not Resolved]

NARRATIVE: CASE EVENT DATE: 20050401
